FAERS Safety Report 8780563 (Version 2)
Quarter: 2012Q4

REPORT INFORMATION
  Report Type: 
  Country: US (occurrence: US)
  Receive Date: 20120913
  Receipt Date: 20121023
  Transmission Date: 20130627
  Serious: No
  Sender: FDA-Public Use
  Company Number: US-PFIZER INC-2012223054

PATIENT
  Age: 38 Year
  Sex: Female

DRUGS (1)
  1. CELEBREX [Suspect]
     Dosage: 100 mg

REACTIONS (1)
  - Drug hypersensitivity [Unknown]
